FAERS Safety Report 8773907 (Version 6)
Quarter: 2013Q1

REPORT INFORMATION
  Report Type: Report from Study
  Country: GB (occurrence: GB)
  Receive Date: 20120907
  Receipt Date: 20130204
  Transmission Date: 20140127
  Serious: Yes (Life-Threatening, Hospitalization, Other)
  Sender: FDA-Public Use
  Company Number: GB-BRISTOL-MYERS SQUIBB COMPANY-16927758

PATIENT
  Age: 54 Year
  Sex: Male

DRUGS (6)
  1. IPILIMUMAB [Suspect]
     Indication: MALIGNANT MELANOMA
     Route: 042
     Dates: start: 20120719, end: 20120920
  2. PREDNISOLONE [Concomitant]
     Dosage: RESTARED 3SEP12
     Route: 048
     Dates: start: 20120831
  3. PARACETAMOL [Concomitant]
     Route: 048
     Dates: start: 20120821, end: 20120831
  4. IBUPROFEN [Concomitant]
     Route: 048
     Dates: start: 20120821
  5. ADCAL [Concomitant]
     Dates: start: 20120906
  6. OMEPRAZOLE [Concomitant]
     Dates: start: 20120903

REACTIONS (2)
  - Pneumonitis [Recovered/Resolved]
  - Influenza like illness [Recovered/Resolved]
